FAERS Safety Report 25373563 (Version 1)
Quarter: 2025Q2

REPORT INFORMATION
  Report Type: Spontaneous
  Country: US (occurrence: None)
  Receive Date: 20250528
  Receipt Date: 20250528
  Transmission Date: 20250717
  Serious: Yes (Disabling, Other)
  Sender: FDA-CTU
  Company Number: None

PATIENT
  Age: 62 Year
  Sex: Female
  Weight: 72 kg

DRUGS (17)
  1. ALENDRONATE SODIUM [Suspect]
     Active Substance: ALENDRONATE SODIUM
     Indication: Osteoporosis
     Dosage: OTHER QUANTITY : 1 TABLET(S);?OTHER FREQUENCY : ONCE A WEEK;?
     Route: 048
     Dates: start: 20250309, end: 20250525
  2. LEXAPRO [Concomitant]
     Active Substance: ESCITALOPRAM OXALATE
  3. ADDERALL [Concomitant]
     Active Substance: AMPHETAMINE ASPARTATE\AMPHETAMINE SULFATE\DEXTROAMPHETAMINE SACCHARATE\DEXTROAMPHETAMINE SULFATE
  4. WELLBUTRIN [Concomitant]
     Active Substance: BUPROPION HYDROCHLORIDE
  5. PROTEIN POWDER [Concomitant]
  6. VITAMINS [Concomitant]
     Active Substance: VITAMINS
  7. MAGNESIUM [Concomitant]
     Active Substance: MAGNESIUM
  8. MCT [Concomitant]
  9. POLYPHENOLS [Concomitant]
  10. COENZYME Q10 [Concomitant]
     Active Substance: DIETARY SUPPLEMENT\UBIDECARENONE
  11. D3 5000 WITH VITAMIN K [Concomitant]
  12. HERBALS [Concomitant]
     Active Substance: HERBALS
  13. HERBALS\WITHANIA SOMNIFERA ROOT [Concomitant]
     Active Substance: HERBALS\WITHANIA SOMNIFERA ROOT
  14. ASIAN GINSENG [Concomitant]
     Active Substance: ASIAN GINSENG
  15. HERBALS [Concomitant]
     Active Substance: HERBALS
  16. ROSEA [Concomitant]
  17. HAIR SKIN AND NAILS [Concomitant]

REACTIONS (10)
  - Nausea [None]
  - Headache [None]
  - Gait disturbance [None]
  - Swollen tongue [None]
  - Limb discomfort [None]
  - Back pain [None]
  - Fatigue [None]
  - Asthenia [None]
  - Disability [None]
  - Dizziness [None]

NARRATIVE: CASE EVENT DATE: 20250330
